FAERS Safety Report 9388062 (Version 2)
Quarter: 2013Q3

REPORT INFORMATION
  Report Type: Spontaneous
  Country: US (occurrence: None)
  Receive Date: 20130703
  Receipt Date: 20130725
  Transmission Date: 20140515
  Serious: Yes (Hospitalization, Other)
  Sender: FDA-Public Use
  Company Number: JPI-P-033199

PATIENT
  Age: 38 Year
  Sex: Female
  Weight: 54.43 kg

DRUGS (5)
  1. XYREM (500 MILLIGRAM/MILLILITERS, SOLUTION) (SODIUM OXYBATE) [Suspect]
     Indication: NARCOLEPSY
     Dosage: 4.5 GM (2.25 GM, 2 IN 1 D), ORAL
     Route: 048
     Dates: start: 20080327
  2. METHYLPHENIDATE [Concomitant]
  3. PREGABALIN [Suspect]
     Indication: FIBROMYALGIA
  4. IRON INFUSIONS [Concomitant]
  5. VITAMIN B-12 [Concomitant]

REACTIONS (8)
  - Intervertebral disc protrusion [None]
  - Headache [None]
  - Hypoaesthesia [None]
  - Nausea [None]
  - Agitation [None]
  - Weight increased [None]
  - Haemorrhage [None]
  - Weight decreased [None]
